FAERS Safety Report 10224916 (Version 1)
Quarter: 2014Q2

REPORT INFORMATION
  Report Type: Spontaneous
  Country: DE (occurrence: DE)
  Receive Date: 20140609
  Receipt Date: 20140609
  Transmission Date: 20141212
  Serious: Yes (Death, Life-Threatening, Hospitalization)
  Sender: FDA-Public Use
  Company Number: DE-TEVA-484623GER

PATIENT
  Age: 85 Year
  Sex: Female

DRUGS (16)
  1. PREDNISOLON [Suspect]
     Indication: ASTHMA
     Dosage: 30 MILLIGRAM DAILY;
     Route: 048
     Dates: start: 20130808
  2. PREDNISOLON [Suspect]
     Dosage: 20 MILLIGRAM DAILY;
     Route: 048
     Dates: start: 20130809
  3. PREDNISOLON [Suspect]
     Dosage: 10 MILLIGRAM DAILY;
     Route: 048
     Dates: start: 20130810
  4. PREDNISOLON [Suspect]
     Dosage: 10 MILLIGRAM DAILY;
     Route: 048
     Dates: start: 20130814, end: 20130816
  5. PREDNISOLON [Suspect]
     Dosage: 7.5 MILLIGRAM DAILY;
     Route: 048
     Dates: start: 20130817, end: 20130819
  6. PREDNISOLON [Suspect]
     Dosage: 5 MILLIGRAM DAILY;
     Route: 048
     Dates: start: 20130820, end: 20130822
  7. PREDNISOLON [Suspect]
     Dosage: 2.5 MILLIGRAM DAILY;
     Route: 048
     Dates: start: 20130823, end: 20130824
  8. EXELON [Suspect]
     Dosage: 4.6 MILLIGRAM DAILY;
     Route: 062
     Dates: start: 20130816, end: 20130824
  9. RISPERDAL [Suspect]
     Dosage: .5 MILLIGRAM DAILY;
     Route: 048
     Dates: start: 20130819, end: 20130824
  10. METHIZOL [Concomitant]
     Dosage: 5 MILLIGRAM DAILY;
     Route: 048
     Dates: end: 20130824
  11. ATMADISC 50 UG/100 UG [Concomitant]
     Dosage: 1 DOSAGE FORMS DAILY;
     Route: 048
     Dates: end: 20130824
  12. INEGY 10 MG/20 MG [Concomitant]
     Dosage: 1 DOSAGE FORMS DAILY;
     Route: 048
     Dates: end: 20130817
  13. INEGY 10 MG/20 MG [Concomitant]
     Route: 048
     Dates: start: 20130820, end: 20130824
  14. NOVAMINSULFON [Concomitant]
     Dosage: 1500 MILLIGRAM DAILY;
     Route: 048
     Dates: start: 20130808, end: 20130813
  15. NOVAMINSULFON [Concomitant]
     Dosage: 2000 MILLIGRAM DAILY;
     Route: 048
     Dates: start: 20130816, end: 20130822
  16. NOVAMINSULFON [Concomitant]
     Dosage: 2000 MILLIGRAM DAILY;
     Route: 048
     Dates: start: 20130823, end: 20130824

REACTIONS (5)
  - Death [Fatal]
  - Respiratory distress [Unknown]
  - Pain in extremity [Unknown]
  - Erythema [Unknown]
  - Peripheral swelling [Unknown]
